FAERS Safety Report 9361069 (Version 1)
Quarter: 2013Q2

REPORT INFORMATION
  Report Type: Spontaneous
  Country: US (occurrence: None)
  Receive Date: 20130618
  Receipt Date: 20130618
  Transmission Date: 20140414
  Serious: Yes (Hospitalization)
  Sender: FDA-Public Use
  Company Number: JPI-P-032810

PATIENT
  Age: 26 Year
  Sex: Male
  Weight: 79.38 kg

DRUGS (4)
  1. XYREM [Suspect]
     Indication: INSOMNIA
     Dosage: 4.5 GM 1ST DOSE/ 2.25 GM 2ND
     Route: 048
     Dates: start: 20110915, end: 2011
  2. AMPICILLIN [Suspect]
     Indication: PRODUCT USED FOR UNKNOWN INDICATION
  3. OXYCODONE HYDROCHLORIDE [Suspect]
  4. OXYMORPHONE HYDROCHLORIDE [Suspect]

REACTIONS (4)
  - Drug hypersensitivity [None]
  - Laceration [None]
  - Abdominal pain upper [None]
  - Joint swelling [None]
